FAERS Safety Report 8510464 (Version 2)
Quarter: 2014Q2

REPORT INFORMATION
  Report Type: Spontaneous
  Country: US (occurrence: US)
  Receive Date: 20120413
  Receipt Date: 20140625
  Transmission Date: 20141212
  Serious: No
  Sender: FDA-Public Use
  Company Number: US-PFIZER INC-2012090267

PATIENT
  Age: 83 Year
  Sex: Female

DRUGS (2)
  1. BENZYLPENICILLIN POTASSIUM [Suspect]
     Dosage: UNK
  2. FLAGYL [Suspect]
     Dosage: UNK

REACTIONS (1)
  - Drug hypersensitivity [Unknown]
